FAERS Safety Report 24361994 (Version 1)
Quarter: 2024Q3

REPORT INFORMATION
  Report Type: Report from Study
  Country: ZA (occurrence: ZA)
  Receive Date: 20240925
  Receipt Date: 20240925
  Transmission Date: 20241016
  Serious: Yes (Death, Other)
  Sender: REGENERON
  Company Number: ZA-BAYER-2024A135514

PATIENT
  Sex: Male

DRUGS (1)
  1. EYLEA [Suspect]
     Active Substance: AFLIBERCEPT
     Indication: Macular oedema
     Dosage: 1XVIAL; SOLUTION FOR INJECTION; 40 MG/ML
     Dates: start: 20230815

REACTIONS (1)
  - Death [Fatal]
